FAERS Safety Report 25160257 (Version 1)
Quarter: 2025Q2

REPORT INFORMATION
  Report Type: Spontaneous
  Country: PL (occurrence: PL)
  Receive Date: 20250404
  Receipt Date: 20250404
  Transmission Date: 20250717
  Serious: Yes (Life-Threatening, Hospitalization, Other)
  Sender: RANBAXY
  Company Number: PL-SUN PHARMACEUTICAL INDUSTRIES LTD-2025R1-502105

PATIENT
  Age: 51 Year
  Sex: Female

DRUGS (15)
  1. TELMISARTAN [Suspect]
     Active Substance: TELMISARTAN
     Indication: Hypertension
     Dosage: 80 MILLIGRAM, DAILY
     Route: 065
  2. BISOPROLOL [Suspect]
     Active Substance: BISOPROLOL
     Indication: Hypertension
     Dosage: 5 MILLIGRAM, DAILY
     Route: 065
  3. CAPTOPRIL [Suspect]
     Active Substance: CAPTOPRIL
     Indication: Hypertension
     Dosage: 25 MILLIGRAM, TID
     Route: 065
  4. DOXAZOSIN [Suspect]
     Active Substance: DOXAZOSIN MESYLATE
     Indication: Hypertension
     Dosage: 4 MILLIGRAM, DAILY
     Route: 065
  5. DOXAZOSIN [Suspect]
     Active Substance: DOXAZOSIN MESYLATE
     Dosage: 12 MILLIGRAM, DAILY
     Route: 065
  6. INSULIN NOS [Suspect]
     Active Substance: INSULIN NOS
     Indication: Diabetes mellitus
     Dosage: 42 INTERNATIONAL UNIT, DAILY
     Route: 065
  7. INSULIN NOS [Suspect]
     Active Substance: INSULIN NOS
     Dosage: 44 INTERNATIONAL UNIT, DAILY
     Route: 065
  8. INSULIN NOS [Suspect]
     Active Substance: INSULIN NOS
     Dosage: 53 INTERNATIONAL UNIT, DAILY
     Route: 065
  9. INSULIN NOS [Suspect]
     Active Substance: INSULIN NOS
     Dosage: 52 INTERNATIONAL UNIT, DAILY
     Route: 065
  10. INSULIN NOS [Suspect]
     Active Substance: INSULIN NOS
     Dosage: 51 INTERNATIONAL UNIT, DAILY
     Route: 065
  11. INSULIN NOS [Suspect]
     Active Substance: INSULIN NOS
     Dosage: 50 INTERNATIONAL UNIT, DAILY
     Route: 065
  12. LERCANIDIPINE [Suspect]
     Active Substance: LERCANIDIPINE
     Indication: Hypertension
     Dosage: 20 MILLIGRAM, DAILY
     Route: 065
  13. NEBIVOLOL [Suspect]
     Active Substance: NEBIVOLOL
     Indication: Hypertension
     Dosage: 5 MILLIGRAM, DAILY
     Route: 065
  14. NITROGLYCERIN [Suspect]
     Active Substance: NITROGLYCERIN
     Indication: Hypertension
     Route: 065
  15. SPIRONOLACTONE [Suspect]
     Active Substance: SPIRONOLACTONE
     Indication: Hypertension
     Dosage: 200 MILLIGRAM, DAILY
     Route: 065

REACTIONS (6)
  - Hyperadrenocorticism [Unknown]
  - Hypokalaemia [Unknown]
  - Condition aggravated [Unknown]
  - Cardiac failure [Unknown]
  - Dyspnoea [Unknown]
  - Face oedema [Unknown]
